FAERS Safety Report 22061353 (Version 1)
Quarter: 2023Q1

REPORT INFORMATION
  Report Type: Spontaneous
  Country: TR (occurrence: TR)
  Receive Date: 20230304
  Receipt Date: 20230304
  Transmission Date: 20230418
  Serious: Yes (Other)
  Sender: FDA-Public Use
  Company Number: TR-ABBOTT-2022A-1353064

PATIENT
  Sex: Male

DRUGS (1)
  1. FENOFIBRATE [Interacting]
     Active Substance: FENOFIBRATE
     Indication: Blood triglycerides increased
     Route: 048
     Dates: start: 202201, end: 202202

REACTIONS (3)
  - Rhabdomyolysis [Recovered/Resolved]
  - Blood creatine phosphokinase increased [Recovered/Resolved]
  - Wrong patient [Recovered/Resolved]

NARRATIVE: CASE EVENT DATE: 20220101
